FAERS Safety Report 5884369-7 (Version None)
Quarter: 2008Q3

REPORT INFORMATION
  Report Type: 
  Country: None (occurrence: None)
  Receive Date: 20080915
  Receipt Date: 20080903
  Transmission Date: 20090109
  Serious: Yes (Other)
  Sender: FDA-Public Use
  Company Number: US-PFIZER INC-2008054289

PATIENT
  Sex: Female
  Weight: 104 kg

DRUGS (14)
  1. CHANTIX [Suspect]
     Indication: SMOKING CESSATION THERAPY
     Dates: start: 20080419
  2. DOXEPIN HCL [Concomitant]
  3. IBUPROFEN [Concomitant]
  4. WELLBUTRIN [Concomitant]
  5. LEXAPRO [Concomitant]
  6. DEPAKOTE [Concomitant]
  7. HYDROXYZINE [Concomitant]
  8. VALSARTAN [Concomitant]
  9. LORATADINE [Concomitant]
  10. ALL OTHER THERAPEUTIC PRODUCTS [Concomitant]
  11. ABILIFY [Concomitant]
     Indication: ANXIETY
  12. ALL OTHER THERAPEUTIC PRODUCTS [Concomitant]
     Indication: PSYCHOTIC DISORDER
  13. ALL OTHER THERAPEUTIC PRODUCTS [Concomitant]
     Indication: HYPERTENSION
  14. ALL OTHER THERAPEUTIC PRODUCTS [Concomitant]
     Indication: RENAL DISORDER

REACTIONS (3)
  - ANXIETY [None]
  - BLOOD PRESSURE INCREASED [None]
  - HALLUCINATION [None]
